FAERS Safety Report 7902747-9 (Version None)
Quarter: 2011Q4

REPORT INFORMATION
  Report Type: 
  Country: None (occurrence: None)
  Receive Date: 20111109
  Receipt Date: 20111031
  Transmission Date: 20120403
  Serious: Yes (Other)
  Sender: FDA-Public Use
  Company Number: US-BIOGENIDEC-2011BI036128

PATIENT
  Age: 37 Year
  Sex: Female

DRUGS (2)
  1. KLONOPIN [Concomitant]
  2. TYSABRI [Suspect]
     Indication: MULTIPLE SCLEROSIS
     Route: 042
     Dates: start: 20100914

REACTIONS (1)
  - DRUG WITHDRAWAL CONVULSIONS [None]
